FAERS Safety Report 10217253 (Version 3)
Quarter: 2014Q3

REPORT INFORMATION
  Report Type: Spontaneous
  Country: CH (occurrence: CH)
  Receive Date: 20140604
  Receipt Date: 20140707
  Transmission Date: 20150326
  Serious: Yes (Life-Threatening, Hospitalization, Disabling)
  Sender: FDA-Public Use
  Company Number: CH-TEVA-484312ISR

PATIENT
  Age: 55 Year
  Sex: Male
  Weight: 80 kg

DRUGS (5)
  1. CITALOPRAM [Suspect]
     Active Substance: CITALOPRAM HYDROBROMIDE
     Indication: DEPRESSION
  2. LAMOTRIN-MEPHA [Suspect]
     Active Substance: LAMOTRIGINE
     Indication: BIPOLAR DISORDER
     Dosage: 100 MICROGRAM DAILY;
     Route: 048
     Dates: start: 20100601, end: 20100615
  3. CITALOPRAM [Suspect]
     Active Substance: CITALOPRAM HYDROBROMIDE
     Indication: BIPOLAR DISORDER
  4. LAMOTRIN-MEPHA [Suspect]
     Active Substance: LAMOTRIGINE
     Indication: DEPRESSION
     Dosage: 50 MICROGRAM DAILY;
     Route: 048
     Dates: start: 20100517, end: 20100531
  5. LAMOTRIN-MEPHA [Suspect]
     Active Substance: LAMOTRIGINE
     Dosage: 150 MICROGRAM DAILY;
     Route: 048
     Dates: start: 20100616, end: 20100623

REACTIONS (4)
  - Toxic epidermal necrolysis [Unknown]
  - Blindness [Not Recovered/Not Resolved]
  - Stevens-Johnson syndrome [Not Recovered/Not Resolved]
  - Rash generalised [Not Recovered/Not Resolved]

NARRATIVE: CASE EVENT DATE: 20100623
